FAERS Safety Report 26103768 (Version 1)
Quarter: 2025Q4

REPORT INFORMATION
  Report Type: Report from Study
  Country: EU (occurrence: EU)
  Receive Date: 20251129
  Receipt Date: 20251129
  Transmission Date: 20260117
  Serious: No
  Sender: TAKEDA
  Company Number: EU-TAKEDA-2025TUS078363

PATIENT
  Age: 33 Year
  Sex: Female

DRUGS (10)
  1. TEDUGLUTIDE [Suspect]
     Active Substance: TEDUGLUTIDE
     Indication: Short-bowel syndrome
     Dosage: 2.6 MILLIGRAM, QD
     Dates: start: 20181010, end: 20181221
  2. TEDUGLUTIDE [Suspect]
     Active Substance: TEDUGLUTIDE
  3. TEDUGLUTIDE [Suspect]
     Active Substance: TEDUGLUTIDE
  4. TEDUGLUTIDE [Suspect]
     Active Substance: TEDUGLUTIDE
  5. VITAMIN B12 [Concomitant]
     Active Substance: CYANOCOBALAMIN
     Indication: Vitamin B complex deficiency
     Dosage: 1000 MICROGRAM
  6. URSODIOL [Concomitant]
     Active Substance: URSODIOL
     Indication: Crohn^s disease
     Dosage: 500 MILLIGRAM, QD
     Dates: start: 20191115
  7. CHOLECALCIFEROL [Concomitant]
     Active Substance: CHOLECALCIFEROL
     Dosage: 20000 INTERNATIONAL UNIT
  8. ONDANSETRON [Concomitant]
     Active Substance: ONDANSETRON
     Indication: Nausea
     Dosage: 4 MILLIGRAM
  9. ONDANSETRON [Concomitant]
     Active Substance: ONDANSETRON
     Indication: Vomiting
  10. MAGNESIUM [Concomitant]
     Active Substance: MAGNESIUM
     Indication: Blood magnesium decreased
     Dosage: UNK

REACTIONS (10)
  - Ligament rupture [Not Recovered/Not Resolved]
  - Body temperature increased [Not Recovered/Not Resolved]
  - Bacterial disease carrier [Recovered/Resolved]
  - Alopecia [Not Recovered/Not Resolved]
  - Disturbance in attention [Not Recovered/Not Resolved]
  - Contusion [Recovered/Resolved]
  - Fatigue [Not Recovered/Not Resolved]
  - Skin papilloma [Not Recovered/Not Resolved]
  - Abdominal pain upper [Not Recovered/Not Resolved]
  - Decreased appetite [Not Recovered/Not Resolved]

NARRATIVE: CASE EVENT DATE: 20240930
